FAERS Safety Report 19405566 (Version 1)
Quarter: 2021Q2

REPORT INFORMATION
  Report Type: Spontaneous
  Country: US (occurrence: US)
  Receive Date: 20210611
  Receipt Date: 20210611
  Transmission Date: 20210717
  Serious: Yes (Other)
  Sender: FDA-Public Use
  Company Number: US-BAYER-2021-156100

PATIENT
  Age: 71 Year
  Sex: Female

DRUGS (3)
  1. ACETYLSALICYLIC ACID [Suspect]
     Active Substance: ASPIRIN
  2. NIMODIPINE. [Concomitant]
     Active Substance: NIMODIPINE
  3. LEVETIRACETAM. [Concomitant]
     Active Substance: LEVETIRACETAM

REACTIONS (7)
  - Vomiting [None]
  - Subarachnoid haemorrhage [None]
  - Meningism [None]
  - Confusional state [None]
  - Thunderclap headache [None]
  - Intraventricular haemorrhage [None]
  - Nausea [None]
